FAERS Safety Report 11640011 (Version 1)
Quarter: 2015Q4

REPORT INFORMATION
  Report Type: Spontaneous
  Country: US (occurrence: US)
  Receive Date: 20151019
  Receipt Date: 20151019
  Transmission Date: 20160304
  Serious: No
  Sender: FDA-Public Use
  Company Number: US-PFIZER INC-2015345920

PATIENT
  Sex: Female

DRUGS (4)
  1. LYRICA [Suspect]
     Active Substance: PREGABALIN
     Indication: FIBROMYALGIA
     Dosage: 75 MG, UNK
     Route: 048
  2. NEURONTIN [Interacting]
     Active Substance: GABAPENTIN
     Dosage: 1800 MG TOTAL; 900 MG IN THE MORNING AND 900 MG AT NIGHT
  3. LITHIUM. [Interacting]
     Active Substance: LITHIUM
  4. LYRICA [Interacting]
     Active Substance: PREGABALIN
     Indication: NEURALGIA
     Dosage: 150 MG, 2X/DAY
     Route: 048

REACTIONS (3)
  - Liver disorder [Recovered/Resolved]
  - Renal disorder [Recovered/Resolved]
  - Drug interaction [Recovered/Resolved]
